FAERS Safety Report 15589328 (Version 2)
Quarter: 2018Q4

REPORT INFORMATION
  Report Type: Spontaneous
  Country: US (occurrence: US)
  Receive Date: 20181106
  Receipt Date: 20181114
  Transmission Date: 20190205
  Serious: Yes (Hospitalization, Other)
  Sender: FDA-Public Use
  Company Number: US-RECKITT BENCKISER HEALTHCARE INT LIMITED-RB-93184-2018

PATIENT
  Age: 16 Year
  Sex: Male

DRUGS (1)
  1. DEXTROMETHORPHAN [Suspect]
     Active Substance: DEXTROMETHORPHAN
     Indication: PRODUCT USED FOR UNKNOWN INDICATION
     Dosage: UNK (20 OVER-THE-COUNTER PILLS)
     Route: 048

REACTIONS (9)
  - Mania [Recovered/Resolved]
  - Mood altered [Recovering/Resolving]
  - Delusion [Recovering/Resolving]
  - Distractibility [Recovering/Resolving]
  - Grandiosity [Recovering/Resolving]
  - Euphoric mood [Recovering/Resolving]
  - Energy increased [Recovering/Resolving]
  - Pressure of speech [Recovering/Resolving]
  - Insomnia [Recovering/Resolving]
